FAERS Safety Report 12718039 (Version 2)
Quarter: 2016Q4

REPORT INFORMATION
  Report Type: Spontaneous
  Country: US (occurrence: US)
  Receive Date: 20160906
  Receipt Date: 20161121
  Transmission Date: 20170207
  Serious: Yes (Other)
  Sender: FDA-Public Use
  Company Number: US-BAYER-2016-170145

PATIENT
  Sex: Female
  Weight: 82.54 kg

DRUGS (2)
  1. LEVAQUIN [Suspect]
     Active Substance: LEVOFLOXACIN
     Dosage: UNK
  2. CIPRO [Suspect]
     Active Substance: CIPROFLOXACIN HYDROCHLORIDE
     Dosage: UNK

REACTIONS (7)
  - Hypoaesthesia [None]
  - Neuropathy peripheral [None]
  - Diplopia [None]
  - Balance disorder [None]
  - Pain [None]
  - Vision blurred [None]
  - Pain in extremity [None]
